FAERS Safety Report 10007287 (Version 2)
Quarter: 2014Q1

REPORT INFORMATION
  Report Type: Spontaneous
  Country: US (occurrence: US)
  Receive Date: 20140313
  Receipt Date: 20140319
  Transmission Date: 20141002
  Serious: Yes (Hospitalization)
  Sender: FDA-Public Use
  Company Number: US-BAXTER-2014BAX012335

PATIENT
  Age: 67 Year
  Sex: Male

DRUGS (1)
  1. DIANEAL LOW CALCIUM [Suspect]
     Indication: PERITONEAL DIALYSIS
     Route: 033
     Dates: start: 2008, end: 20140309

REACTIONS (6)
  - Herpes zoster [Recovering/Resolving]
  - Confusional state [Recovering/Resolving]
  - Blood glucose increased [Recovering/Resolving]
  - Hypertension [Recovering/Resolving]
  - Nausea [Recovering/Resolving]
  - Vomiting [Recovering/Resolving]
